FAERS Safety Report 15721271 (Version 1)
Quarter: 2018Q4

REPORT INFORMATION
  Report Type: Spontaneous
  Country: GB (occurrence: GB)
  Receive Date: 20181214
  Receipt Date: 20181214
  Transmission Date: 20190205
  Serious: Yes (Other)
  Sender: FDA-Public Use
  Company Number: GB-TEVA-2018-GB-985902

PATIENT
  Age: 18 Year
  Sex: Female
  Weight: 43 kg

DRUGS (2)
  1. CERELLE [Concomitant]
     Active Substance: DESOGESTREL
     Route: 065
  2. DOXYCYCLINE. [Suspect]
     Active Substance: DOXYCYCLINE
     Indication: LYME DISEASE
     Dosage: 200 MILLIGRAM DAILY;
     Route: 048
     Dates: start: 20181106

REACTIONS (1)
  - Epistaxis [Not Recovered/Not Resolved]
